FAERS Safety Report 15610814 (Version 1)
Quarter: 2018Q4

REPORT INFORMATION
  Report Type: Spontaneous
  Country: US (occurrence: US)
  Receive Date: 20181113
  Receipt Date: 20181113
  Transmission Date: 20190205
  Serious: No
  Sender: FDA-Public Use
  Company Number: US-BIOGEN-2018BI00654782

PATIENT
  Sex: Female

DRUGS (1)
  1. TYSABRI [Suspect]
     Active Substance: NATALIZUMAB
     Indication: MULTIPLE SCLEROSIS
     Route: 042
     Dates: start: 20180621

REACTIONS (5)
  - Gait disturbance [Unknown]
  - Anal incontinence [Unknown]
  - Urinary incontinence [Unknown]
  - Tremor [Unknown]
  - Asthenia [Unknown]
